FAERS Safety Report 19353001 (Version 2)
Quarter: 2021Q2

REPORT INFORMATION
  Report Type: Spontaneous
  Country: FR (occurrence: FR)
  Receive Date: 20210531
  Receipt Date: 20210617
  Transmission Date: 20210717
  Serious: Yes (Death, Hospitalization)
  Sender: FDA-Public Use
  Company Number: FR-PFIZER INC-2021611215

PATIENT
  Sex: Female

DRUGS (6)
  1. VYNDAQEL [Suspect]
     Active Substance: TAFAMIDIS MEGLUMINE
     Indication: CARDIAC AMYLOIDOSIS
     Dosage: 20 MG, 1X/DAY IN THE MORNING
     Dates: end: 20210514
  2. PANTOPRAZOLE [Concomitant]
     Active Substance: PANTOPRAZOLE
     Dosage: 20 MG, 1X/DAY IN THE EVENING
  3. BISOPROLOL [Concomitant]
     Active Substance: BISOPROLOL
  4. FUROSEMIDE. [Concomitant]
     Active Substance: FUROSEMIDE
     Dosage: 40 MG
  5. METFORMIN [Suspect]
     Active Substance: METFORMIN HYDROCHLORIDE
     Indication: DIABETES MELLITUS
     Dosage: 500 MG, 2X/DAY
  6. APIXABAN [Concomitant]
     Active Substance: APIXABAN
     Dosage: 2.5 MG

REACTIONS (6)
  - Asthenia [Unknown]
  - Off label use [Unknown]
  - Acute kidney injury [Fatal]
  - Metabolic acidosis [Fatal]
  - Condition aggravated [Unknown]
  - Dehydration [Unknown]

NARRATIVE: CASE EVENT DATE: 2021
